FAERS Safety Report 19415050 (Version 7)
Quarter: 2022Q4

REPORT INFORMATION
  Report Type: Report from Study
  Country: US (occurrence: None)
  Receive Date: 20210615
  Receipt Date: 20221007
  Transmission Date: 20230113
  Serious: Yes (Other)
  Sender: FDA-Public Use
  Company Number: US-ROCHE-2844222

PATIENT
  Age: 44 Year
  Sex: Female
  Weight: 63.7 kg

DRUGS (17)
  1. ATEZOLIZUMAB [Suspect]
     Active Substance: ATEZOLIZUMAB
     Indication: Bile duct cancer
     Dosage: ON 02/JUN/2021, SHE RECEIVED MOST RECENT DOSE OF ATEZOLIZUMAB (1200 MG) PRIOR TO ONSET OF SERIOUS AD
     Route: 042
     Dates: start: 20210510
  2. BEVACIZUMAB [Suspect]
     Active Substance: BEVACIZUMAB
     Indication: Bile duct cancer
     Dosage: ON 10/MAY/2021, SHE RECEIVED MOST RECENT DOSE OF BLINDED BEVACIZUMAB PRIOR TO ONSET OF SERIOUS ADVER
     Route: 042
     Dates: start: 20210510
  3. CISPLATIN [Suspect]
     Active Substance: CISPLATIN
     Indication: Bile duct cancer
     Dosage: ON 17/MAY/2021, SHE RECEIVED MOST RECENT DOSE OF CISPLATIN (43 MG) PRIOR TO ONSET OF SERIOUS ADVERSE
     Route: 042
     Dates: start: 20210510
  4. GEMCITABINE [Suspect]
     Active Substance: GEMCITABINE
     Indication: Bile duct cancer
     Dosage: ON 17/MAY/2021, SHE RECEIVED MOST RECENT DOSE OF GEMCITABINE (1000 MG) PRIOR TO ONSET OF SERIOUS ADV
     Route: 042
     Dates: start: 20210510
  5. IBUPROFEN [Concomitant]
     Active Substance: IBUPROFEN
     Indication: Abdominal pain
  6. TRAMADOL [Concomitant]
     Active Substance: TRAMADOL
     Indication: Abdominal pain
     Dates: end: 20210513
  7. OXYCODONE [Concomitant]
     Active Substance: OXYCODONE
     Indication: Pain
     Dates: start: 20210513
  8. MIRALAX [Concomitant]
     Active Substance: POLYETHYLENE GLYCOL 3350
     Indication: Constipation
     Dates: start: 20210513
  9. FIORICET [Concomitant]
     Active Substance: ACETAMINOPHEN\BUTALBITAL\CAFFEINE
     Indication: Abdominal pain
     Dates: start: 20210603
  10. SENNA [Concomitant]
     Active Substance: SENNA LEAF\SENNOSIDES\SENNOSIDES A AND B
     Indication: Constipation
     Dates: start: 20210606
  11. ZARXIO [Concomitant]
     Active Substance: FILGRASTIM-SNDZ
     Indication: Neutrophil count decreased
     Dates: start: 20210812, end: 20210813
  12. OXALIPLATIN [Concomitant]
     Active Substance: OXALIPLATIN
     Route: 042
     Dates: start: 20210929
  13. LEUCOVORIN [Concomitant]
     Active Substance: LEUCOVORIN
     Route: 042
     Dates: start: 20210929
  14. FLUOROURACIL [Concomitant]
     Active Substance: FLUOROURACIL
     Route: 042
     Dates: start: 20210929
  15. ATIVAN [Concomitant]
     Active Substance: LORAZEPAM
     Indication: Prophylaxis
     Dates: start: 20210602
  16. DILAUDID [Concomitant]
     Active Substance: HYDROMORPHONE HYDROCHLORIDE
     Indication: Pain
     Dates: start: 20210913
  17. CEFEPIME [Concomitant]
     Active Substance: CEFEPIME HYDROCHLORIDE
     Indication: Infection prophylaxis
     Dates: start: 20210913, end: 20210913

REACTIONS (1)
  - Hypertension [Recovered/Resolved]

NARRATIVE: CASE EVENT DATE: 20210602
